FAERS Safety Report 16024324 (Version 2)
Quarter: 2019Q2

REPORT INFORMATION
  Report Type: Spontaneous
  Country: US (occurrence: US)
  Receive Date: 20190301
  Receipt Date: 20190425
  Transmission Date: 20190711
  Serious: Yes (Other)
  Sender: FDA-Public Use
  Company Number: US-PFIZER INC-2019080046

PATIENT
  Age: 61 Year
  Sex: Male
  Weight: 83.86 kg

DRUGS (3)
  1. IBUPROFEN. [Suspect]
     Active Substance: IBUPROFEN
     Indication: PAIN
     Dosage: 200 MG, UNK(1-2 PER WEEK OCCASIONAL)
  2. NAPROXEN SODIUM. [Suspect]
     Active Substance: NAPROXEN SODIUM
     Indication: PAIN
     Dosage: UNK
  3. LIPITOR [Concomitant]
     Active Substance: ATORVASTATIN CALCIUM
     Dosage: UNK
     Dates: start: 201803, end: 201804

REACTIONS (3)
  - Thrombosis [Recovered/Resolved]
  - Nephrolithiasis [Recovered/Resolved]
  - Renal disorder [Recovered/Resolved]
